FAERS Safety Report 4327950-9 (Version None)
Quarter: 2004Q1

REPORT INFORMATION
  Report Type: 
  Country: None (occurrence: None)
  Receive Date: 20040325
  Receipt Date: 20040315
  Transmission Date: 20041129
  Serious: Yes (Other)
  Sender: FDA-Public Use
  Company Number: 2004017886

PATIENT
  Sex: Female
  Weight: 96.1626 kg

DRUGS (1)
  1. PROCARDIA XL [Suspect]
     Indication: HYPERTENSION
     Dosage: 60 MG (DAILY), ORAL
     Route: 048

REACTIONS (4)
  - ANGIOPLASTY [None]
  - BLOOD PRESSURE INADEQUATELY CONTROLLED [None]
  - RENAL DISORDER [None]
  - STOOL ANALYSIS ABNORMAL [None]
